FAERS Safety Report 10310640 (Version 4)
Quarter: 2015Q2

REPORT INFORMATION
  Report Type: Spontaneous
  Country: US (occurrence: US)
  Receive Date: 20140717
  Receipt Date: 20150525
  Transmission Date: 20150821
  Serious: Yes (Congenital Anomaly, Other)
  Sender: FDA-Public Use
  Company Number: US-JNJFOC-20130306581

PATIENT
  Sex: Female

DRUGS (6)
  1. TOPAMAX [Suspect]
     Active Substance: TOPIRAMATE
     Indication: MAJOR DEPRESSION
     Dosage: MOTHER^S DOSING
     Route: 064
  2. ZITHROMAX [Suspect]
     Active Substance: AZITHROMYCIN DIHYDRATE
     Indication: PRODUCT USED FOR UNKNOWN INDICATION
     Dosage: MOTHER^S DOSING
     Route: 064
  3. TESSALON [Suspect]
     Active Substance: BENZONATATE
     Indication: COUGH
     Dosage: MOTHER^S DOSING
     Route: 064
  4. ANAPLEX [Suspect]
     Active Substance: CHLORPHENIRAMINE MALEATE\PSEUDOEPHEDRINE HYDROCHLORIDE
     Indication: PAIN
     Dosage: MOTHER^S DOSING
     Route: 064
  5. ENTEX PSE [Suspect]
     Active Substance: GUAIFENESIN\PSEUDOEPHEDRINE HYDROCHLORIDE
     Indication: COUGH
     Dosage: MOTHER^S DOSING
     Route: 064
  6. ROBAXIN [Suspect]
     Active Substance: METHOCARBAMOL
     Indication: MUSCLE SPASMS
     Dosage: MOTHER^S DOSING
     Route: 064

REACTIONS (3)
  - Cleft palate [Unknown]
  - Dental caries [Unknown]
  - Foetal exposure during pregnancy [Unknown]
